FAERS Safety Report 23108787 (Version 1)
Quarter: 2023Q4

REPORT INFORMATION
  Report Type: Spontaneous
  Country: US (occurrence: None)
  Receive Date: 20231025
  Receipt Date: 20231025
  Transmission Date: 20240110
  Serious: Yes (Other)
  Sender: FDA-Public Use
  Company Number: None

PATIENT
  Age: 69 Year
  Sex: Male
  Weight: 96.75 kg

DRUGS (3)
  1. MOUNJARO [Suspect]
     Active Substance: TIRZEPATIDE
  2. DULOXETINE [Suspect]
     Active Substance: DULOXETINE
  3. PREDNISONE [Suspect]
     Active Substance: PREDNISONE

REACTIONS (9)
  - Drug interaction [None]
  - Diarrhoea [None]
  - Abdominal distension [None]
  - Flatulence [None]
  - Taste disorder [None]
  - Eructation [None]
  - Gastrointestinal sounds abnormal [None]
  - Abdominal pain [None]
  - Therapy cessation [None]

NARRATIVE: CASE EVENT DATE: 20231017
